FAERS Safety Report 7228959-8 (Version None)
Quarter: 2011Q1

REPORT INFORMATION
  Report Type: 
  Country: None (occurrence: None)
  Receive Date: 20110117
  Receipt Date: 20110104
  Transmission Date: 20110831
  Serious: Yes (Hospitalization)
  Sender: FDA-Public Use
  Company Number: AU-SOLVAY-00210007446

PATIENT
  Age: 59 Year
  Sex: Male

DRUGS (4)
  1. PERINDOPRIL 4 MG NOS [Suspect]
     Indication: HYPERTENSION
     Dosage: DAILY DOSE: 4 MILLIGRAM(S)
     Route: 048
     Dates: end: 20080228
  2. SALBUTAMOL [Concomitant]
     Indication: ASTHMA
     Dosage: DAILY DOSE:  UNKNOWN
     Route: 065
  3. ALLOPURINOL [Concomitant]
     Indication: GOUT
     Dosage: DAILY DOSE:  UNKNOWN
     Route: 065
  4. LEVOTHYROXINE SODIUM [Concomitant]
     Indication: HYPOTHYROIDISM
     Dosage: DAILY DOSE:  UNKNOWN
     Route: 065

REACTIONS (3)
  - PNEUMONIA LEGIONELLA [None]
  - RENAL FAILURE ACUTE [None]
  - RHABDOMYOLYSIS [None]
